FAERS Safety Report 9351463 (Version 1)
Quarter: 2013Q2

REPORT INFORMATION
  Report Type: Spontaneous
  Country: US (occurrence: US)
  Receive Date: 20130617
  Receipt Date: 20130617
  Transmission Date: 20140414
  Serious: Yes (Hospitalization)
  Sender: FDA-Public Use
  Company Number: US-B.I. PHARMACEUTICALS,INC./RIDGEFIELD-2013-BI-16906BP

PATIENT
  Age: 77 Year
  Sex: Male

DRUGS (5)
  1. PRADAXA [Suspect]
     Indication: ATRIAL FIBRILLATION
     Route: 048
     Dates: start: 201105, end: 201106
  2. COMBIVENT [Suspect]
     Indication: CHRONIC OBSTRUCTIVE PULMONARY DISEASE
     Dosage: STRENGTH: 20 MCG / 100 MCG;
     Route: 055
     Dates: start: 20130528, end: 20130611
  3. COMBIVENT [Suspect]
     Indication: CHRONIC OBSTRUCTIVE PULMONARY DISEASE
     Dosage: STRENGTH: 18 MCG / 103 MCG;
     Route: 055
     Dates: start: 2008, end: 20130527
  4. ADVAIR [Concomitant]
     Indication: CHRONIC OBSTRUCTIVE PULMONARY DISEASE
     Dosage: FORMULATION: INHALATION AEROSOL
     Route: 055
     Dates: start: 2013, end: 20130527
  5. SYMBICORT [Concomitant]
     Indication: CHRONIC OBSTRUCTIVE PULMONARY DISEASE
     Dosage: FORMULATION: INHALATION AEROSOL
     Route: 055
     Dates: start: 2013, end: 20130604

REACTIONS (3)
  - Atrial fibrillation [Recovered/Resolved]
  - Haematochezia [Recovered/Resolved]
  - Cough [Not Recovered/Not Resolved]
